FAERS Safety Report 4281320-0 (Version None)
Quarter: 2004Q1

REPORT INFORMATION
  Report Type: 
  Country: None (occurrence: None)
  Receive Date: 20040129
  Receipt Date: 20040120
  Transmission Date: 20041129
  Serious: Yes (Hospitalization)
  Sender: FDA-Public Use
  Company Number: NL-ROCHE-356527

PATIENT
  Age: 70 Year
  Sex: Female
  Weight: 109 kg

DRUGS (3)
  1. INTERFERON ALFA-2A [Suspect]
     Dosage: ONCE WEEKLY (WEEKS 1 AND 4), 6MIU/M^2 MILLION UNITS (ACTUAL DOSE 20MIU) GIVEN THREE TIME PER WEEK (+
     Route: 058
     Dates: start: 20031125, end: 20040109
  2. INTERLEUKIN-2 [Suspect]
     Dosage: 20 MIU/M^2 (ACTUAL DOSE 22 MIU) THREE TIMES PER WEEK (WEEKS 1 AND 4) AND 5 MILLION UNITS/M^2 GIVEN +
     Route: 058
     Dates: start: 20031127, end: 20031219
  3. FLUOROURACIL [Suspect]
     Dosage: (ACTUAL DOSE 1.65G) GIVEN ON DAY ONE OF WEEK 5, 6, 7 AND 8.
     Route: 040
     Dates: start: 20031222, end: 20031229

REACTIONS (3)
  - DYSPNOEA [None]
  - PULMONARY EMBOLISM [None]
  - TACHYCARDIA [None]
